FAERS Safety Report 6149569-X (Version None)
Quarter: 2009Q2

REPORT INFORMATION
  Report Type: 
  Country: None (occurrence: None)
  Receive Date: 20090409
  Receipt Date: 20090331
  Transmission Date: 20091009
  Serious: Yes (Other)
  Sender: FDA-Public Use
  Company Number: PHHY2008VE07528

PATIENT
  Sex: Female

DRUGS (8)
  1. DIOVAN AMLIBON [Suspect]
     Indication: HYPERTENSION
     Dosage: 80MG/5MG ONCE DAILY
     Route: 048
     Dates: start: 20061201
  2. GLUCOFAGE [Concomitant]
     Dosage: 500 MG, QD
     Route: 048
     Dates: start: 20060101
  3. CARDIPRIN [Concomitant]
     Dosage: 80 MG/DAY , QD
     Route: 048
     Dates: start: 20060101
  4. VITAMIN E [Concomitant]
     Dosage: UNK, QD
     Route: 048
     Dates: start: 20060101
  5. OMEPRAZOLE [Concomitant]
     Dosage: UNK, QD
     Route: 048
     Dates: start: 20060101
  6. SUCRALFATE [Concomitant]
     Dosage: 1 G, QD
     Route: 048
     Dates: start: 20060101
  7. LOVAZA [Concomitant]
     Dosage: UNK, TID
     Route: 048
  8. LOPID [Concomitant]
     Dosage: 600 MG, QD
     Route: 048
     Dates: start: 20060101

REACTIONS (5)
  - CEREBROVASCULAR ACCIDENT [None]
  - MYALGIA [None]
  - NUCLEAR MAGNETIC RESONANCE IMAGING BRAIN [None]
  - PARAESTHESIA [None]
  - PARAESTHESIA ORAL [None]
